FAERS Safety Report 5409073-0 (Version None)
Quarter: 2007Q3

REPORT INFORMATION
  Report Type: 
  Country: None (occurrence: None)
  Receive Date: 20070806
  Receipt Date: 20070727
  Transmission Date: 20080115
  Serious: Yes (Other)
  Sender: FDA-Public Use
  Company Number: 2006-06-1537

PATIENT
  Age: 12 Year
  Sex: Female
  Weight: 44 kg

DRUGS (5)
  1. PEG-INTRON (PEGINTERFERON ALFA-2B) (PEGINTERFERON ALFA-B) [Suspect]
     Indication: BONE SARCOMA
     Dosage: 22 MCG;QW;SC
     Route: 058
     Dates: start: 20060526, end: 20060616
  2. METHOTREXATE [Concomitant]
  3. DOXORUBICIN [Concomitant]
  4. CISPLATIN [Concomitant]
  5. KEPINOL [Concomitant]

REACTIONS (2)
  - JOINT SWELLING [None]
  - MOVEMENT DISORDER [None]
